FAERS Safety Report 19455639 (Version 1)
Quarter: 2021Q2

REPORT INFORMATION
  Report Type: Spontaneous
  Country: US (occurrence: US)
  Receive Date: 20210623
  Receipt Date: 20210623
  Transmission Date: 20210717
  Serious: No
  Sender: FDA-Public Use
  Company Number: None

PATIENT
  Age: 62 Year
  Sex: Female
  Weight: 94.5 kg

DRUGS (15)
  1. CALCIUM +D [Concomitant]
     Active Substance: CALCIUM\VITAMIN D
  2. CYANCOBALAMIN [Concomitant]
     Active Substance: CYANOCOBALAMIN
  3. PROCHLORPERAZINE. [Concomitant]
     Active Substance: PROCHLORPERAZINE
  4. ANASTRAZOLE [Concomitant]
     Active Substance: ANASTROZOLE
  5. ASPIRIN. [Concomitant]
     Active Substance: ASPIRIN
  6. OXYCODONE?ACETAMINOPHEN [Concomitant]
     Active Substance: ACETAMINOPHEN\OXYCODONE HYDROCHLORIDE
  7. SUCRALFATE. [Concomitant]
     Active Substance: SUCRALFATE
  8. DYAZIDE [Concomitant]
     Active Substance: HYDROCHLOROTHIAZIDE\TRIAMTERENE
  9. MULTIVITAMIN [Concomitant]
     Active Substance: VITAMINS
  10. OXYGEN. [Concomitant]
     Active Substance: OXYGEN
  11. ONDANSETRON [Concomitant]
     Active Substance: ONDANSETRON
  12. KISQALI [Suspect]
     Active Substance: RIBOCICLIB
     Indication: BREAST CANCER
     Dosage: ?          OTHER FREQUENCY:DAILY FOR 21/28D;?
     Route: 048
     Dates: start: 20210604
  13. FENTANYL. [Concomitant]
     Active Substance: FENTANYL
  14. PROAIR HFA [Concomitant]
     Active Substance: ALBUTEROL SULFATE
  15. MAGNESIUM [Concomitant]
     Active Substance: MAGNESIUM

REACTIONS (5)
  - Vomiting [None]
  - Headache [None]
  - Intentional product use issue [None]
  - Nausea [None]
  - Fatigue [None]

NARRATIVE: CASE EVENT DATE: 20210623
